FAERS Safety Report 14656432 (Version 1)
Quarter: 2018Q1

REPORT INFORMATION
  Report Type: Spontaneous
  Country: US (occurrence: US)
  Receive Date: 20180319
  Receipt Date: 20180319
  Transmission Date: 20180509
  Serious: No
  Sender: FDA-Public Use
  Company Number: US-GILEAD-2018-0325599

PATIENT
  Age: 37 Year
  Sex: Male

DRUGS (5)
  1. FENTERMINA [Suspect]
     Active Substance: PHENTERMINE
     Indication: WEIGHT DECREASED
     Dosage: 30 MG, UNK
     Route: 065
  2. RETINOL W/VITAMIN D NOS [Suspect]
     Active Substance: RETINOL\VITAMIN D
     Indication: PRODUCT USED FOR UNKNOWN INDICATION
     Dosage: UNK
     Route: 065
  3. TRUVADA [Suspect]
     Active Substance: EMTRICITABINE\TENOFOVIR DISOPROXIL FUMARATE
     Indication: PROPHYLAXIS AGAINST HIV INFECTION
     Dosage: UNK
     Route: 065
     Dates: start: 201802
  4. CHROMIUM [Suspect]
     Active Substance: CHROMIC CHLORIDE\CHROMIUM
     Indication: WEIGHT DECREASED
     Dosage: 200 UG, UNK
     Route: 065
  5. ORLISTAT. [Suspect]
     Active Substance: ORLISTAT
     Indication: WEIGHT DECREASED
     Dosage: UNK
     Route: 065

REACTIONS (1)
  - Headache [Not Recovered/Not Resolved]

NARRATIVE: CASE EVENT DATE: 20180307
